FAERS Safety Report 22640649 (Version 1)
Quarter: 2023Q2

REPORT INFORMATION
  Report Type: Spontaneous
  Country: US (occurrence: None)
  Receive Date: 20230623
  Receipt Date: 20230623
  Transmission Date: 20230722
  Serious: Yes (Death)
  Sender: FDA-Public Use
  Company Number: None

PATIENT
  Sex: Female

DRUGS (9)
  1. CAPECITABINE [Suspect]
     Active Substance: CAPECITABINE
     Indication: Breast cancer female
     Dosage: FREQUENCY : TWICE A DAY;?OTHER ROUTE : PO 14DON, 7DOFF;?
     Route: 050
  2. ALLOPURINOL [Concomitant]
  3. AMIODARONE [Concomitant]
     Active Substance: AMIODARONE
  4. CORLANOR [Concomitant]
     Active Substance: IVABRADINE HYDROCHLORIDE
  5. FASLODEX [Concomitant]
     Active Substance: FULVESTRANT
  6. KEPPRA [Concomitant]
     Active Substance: LEVETIRACETAM
  7. METOPROLOL TARTRATE [Concomitant]
     Active Substance: METOPROLOL TARTRATE
  8. NYSTATIN MOUTH/THROAT [Concomitant]
  9. ZOFRAN [Concomitant]
     Active Substance: ONDANSETRON HYDROCHLORIDE

REACTIONS (1)
  - Death [None]
